FAERS Safety Report 19216106 (Version 2)
Quarter: 2021Q2

REPORT INFORMATION
  Report Type: Spontaneous
  Country: US (occurrence: US)
  Receive Date: 20210505
  Receipt Date: 20210531
  Transmission Date: 20210717
  Serious: No
  Sender: FDA-Public Use
  Company Number: US-ASTRAZENECA-2021A364894

PATIENT
  Sex: Male
  Weight: 103.9 kg

DRUGS (2)
  1. BYDUREON BCISE [Suspect]
     Active Substance: EXENATIDE
     Indication: BLOOD CHOLESTEROL
     Route: 058
     Dates: start: 20210409
  2. BYDUREON BCISE [Suspect]
     Active Substance: EXENATIDE
     Indication: BLOOD GLUCOSE ABNORMAL
     Route: 058
     Dates: start: 20210409

REACTIONS (4)
  - Drug delivery system issue [Unknown]
  - Device issue [Unknown]
  - Injection site nodule [Recovering/Resolving]
  - Product dose omission issue [Unknown]
